FAERS Safety Report 20655582 (Version 1)
Quarter: 2022Q1

REPORT INFORMATION
  Report Type: Spontaneous
  Country: IT (occurrence: IT)
  Receive Date: 20220330
  Receipt Date: 20220330
  Transmission Date: 20220423
  Serious: Yes (Death)
  Sender: FDA-Public Use
  Company Number: None

PATIENT
  Age: 73 Year
  Sex: Female
  Weight: 50 kg

DRUGS (1)
  1. BAVENCIO [Suspect]
     Active Substance: AVELUMAB
     Indication: Neuroendocrine carcinoma of the skin
     Route: 042

REACTIONS (5)
  - Monoplegia [Fatal]
  - Diplegia [Fatal]
  - Vomiting [Fatal]
  - Fatigue [Fatal]
  - Asthenia [Fatal]

NARRATIVE: CASE EVENT DATE: 20211104
